FAERS Safety Report 6542934-8 (Version None)
Quarter: 2010Q1

REPORT INFORMATION
  Report Type: 
  Country: None (occurrence: None)
  Receive Date: 20100120
  Receipt Date: 20100105
  Transmission Date: 20100710
  Serious: Yes (Death)
  Sender: FDA-Public Use
  Company Number: US-TYCO HEALTHCARE/MALLINCKRODT-T201000048

PATIENT
  Age: 41 Year
  Sex: Female

DRUGS (1)
  1. FENTANYL [Suspect]
     Route: 048

REACTIONS (9)
  - ANOXIC ENCEPHALOPATHY [None]
  - APNOEA [None]
  - BRADYCARDIA [None]
  - DRUG ABUSE [None]
  - HYPOTENSION [None]
  - LEFT VENTRICULAR DYSFUNCTION [None]
  - RENAL FAILURE ACUTE [None]
  - RHABDOMYOLYSIS [None]
  - UNRESPONSIVE TO STIMULI [None]
